FAERS Safety Report 8070666-6 (Version None)
Quarter: 2012Q1

REPORT INFORMATION
  Report Type: 
  Country: None (occurrence: None)
  Receive Date: 20120125
  Receipt Date: 20120120
  Transmission Date: 20120608
  Serious: Yes (Other)
  Sender: FDA-Public Use
  Company Number: PHEH2008US04921

PATIENT
  Sex: Male

DRUGS (23)
  1. ROBINUL [Concomitant]
     Dosage: UNK UKN, UNK
  2. ZEMURON [Concomitant]
     Dosage: 10 MG, UNK
  3. MEPERIDINE HYDROCHLORIDE [Concomitant]
     Dosage: 50 MG, UNK
  4. ZANTAC [Concomitant]
     Dosage: UNK UKN, PRN
  5. LIDOCAINE [Concomitant]
     Dosage: UNK UKN, UNK
  6. FENTANYL CITRATE [Concomitant]
     Dosage: 0.05 MG, UNK
  7. LISINOPRIL [Concomitant]
  8. METAMUCIL-2 [Concomitant]
     Dosage: UNK UKN, BID
  9. PROMETHAZINE HYDROCHLORIDE [Concomitant]
     Dosage: 25 MG, UNK
  10. SODIUM CHLORIDE [Concomitant]
     Dosage: UNK UKN, UNK
  11. DIAZEPAM [Concomitant]
     Dosage: 10 MG, UNK
  12. HISTRELIN [Concomitant]
  13. EPHEDRINE SULFATE [Concomitant]
     Dosage: UNK UKN, UNK
  14. ATENOLOL [Concomitant]
  15. ZOMETA [Suspect]
     Dosage: 4 MG, UNK
     Route: 042
     Dates: start: 20050222
  16. IBUPROFEN (ADVIL) [Concomitant]
  17. DIPRIVAN [Concomitant]
     Dosage: 10 MG, UNK
  18. MIDAZOLAM [Concomitant]
     Dosage: 2 MG, UNK
  19. BENICAR [Concomitant]
     Dosage: 40/25 MG, QD
  20. PEPCID [Concomitant]
  21. COLACE [Concomitant]
     Dosage: 100 MG, BID
  22. PERCOCET [Concomitant]
     Dosage: 5MG/325 MG, UNK
  23. CITRUCEL [Concomitant]

REACTIONS (38)
  - DIABETES MELLITUS [None]
  - SINUS BRADYCARDIA [None]
  - DIZZINESS [None]
  - PRESYNCOPE [None]
  - RENAL FAILURE ACUTE [None]
  - DYSLIPIDAEMIA [None]
  - HUNGER [None]
  - GOITRE [None]
  - VENTRICULAR HYPERTROPHY [None]
  - METASTASES TO BONE [None]
  - OSTEONECROSIS OF JAW [None]
  - MOUTH ULCERATION [None]
  - ABDOMINAL PAIN [None]
  - AORTIC VALVE INCOMPETENCE [None]
  - THYROID NEOPLASM [None]
  - DILATATION ATRIAL [None]
  - OSTEOPENIA [None]
  - CAROTID ARTERIOSCLEROSIS [None]
  - ORAL PAIN [None]
  - ANAEMIA [None]
  - CHOLECYSTITIS [None]
  - CORONARY ARTERY STENOSIS [None]
  - VITAMIN D DEFICIENCY [None]
  - PAIN [None]
  - ASTHENIA [None]
  - TRICUSPID VALVE INCOMPETENCE [None]
  - MITRAL VALVE INCOMPETENCE [None]
  - EXPOSED BONE IN JAW [None]
  - NAUSEA [None]
  - ERUCTATION [None]
  - LUNG NEOPLASM [None]
  - LYMPH NODE CALCIFICATION [None]
  - SINUSITIS [None]
  - CHOLELITHIASIS [None]
  - BILE DUCT OBSTRUCTION [None]
  - ORTHOSTATIC HYPOTENSION [None]
  - PLEURAL FIBROSIS [None]
  - ORAL HERPES [None]
